FAERS Safety Report 10970995 (Version 1)
Quarter: 2015Q1

REPORT INFORMATION
  Report Type: Spontaneous
  Country: US (occurrence: None)
  Receive Date: 20150330
  Receipt Date: 20150330
  Transmission Date: 20150721
  Serious: No
  Sender: FDA-Public Use
  Company Number: None

PATIENT
  Age: 14 Year
  Sex: Female
  Weight: 74.1 kg

DRUGS (9)
  1. VINCRISTINE SULFATE. [Suspect]
     Active Substance: VINCRISTINE SULFATE
     Dates: end: 20090615
  2. DEXAMETHASONE. [Suspect]
     Active Substance: DEXAMETHASONE
     Dates: end: 20090619
  3. THIOGUANINE [Suspect]
     Active Substance: THIOGUANINE
     Dates: end: 20071014
  4. CYTARABINE. [Suspect]
     Active Substance: CYTARABINE
     Route: 042
     Dates: end: 20071011
  5. DOXORUBICIN HYDROCHLORIDE. [Suspect]
     Active Substance: DOXORUBICIN HYDROCHLORIDE
     Dates: end: 20070918
  6. MERCAPTOPURINE. [Suspect]
     Active Substance: MERCAPTOPURINE
     Dates: end: 20090711
  7. METHOTREXATE [Suspect]
     Active Substance: METHOTREXATE
     Route: 037
     Dates: end: 20090615
  8. ONCASPAR [Suspect]
     Active Substance: PEGASPARGASE
     Dates: end: 20070907
  9. CYCLOPHOSPHAMIDE. [Suspect]
     Active Substance: CYCLOPHOSPHAMIDE
     Dates: end: 20071001

REACTIONS (6)
  - Blood uric acid increased [None]
  - Fatigue [None]
  - Back pain [None]
  - White blood cell count increased [None]
  - Epistaxis [None]
  - Contusion [None]

NARRATIVE: CASE EVENT DATE: 20150324
